FAERS Safety Report 5024363-1 (Version None)
Quarter: 2006Q2

REPORT INFORMATION
  Report Type: 
  Country: None (occurrence: None)
  Receive Date: 20060609
  Receipt Date: 20060609
  Transmission Date: 20061013
  Serious: Yes (Hospitalization)
  Sender: FDA-Public Use
  Company Number: None

PATIENT
  Age: 68 Year
  Sex: Male

DRUGS (6)
  1. RITUXIMAB [Suspect]
     Indication: DIFFUSE LARGE B-CELL LYMPHOMA
  2. VELCADE [Suspect]
     Indication: DIFFUSE LARGE B-CELL LYMPHOMA
     Dosage: IV
     Route: 042
  3. VINCRISTINE [Suspect]
  4. CYTOXAN [Suspect]
  5. DOXORUBICIN HCL [Suspect]
  6. PREDNISOLONE [Suspect]

REACTIONS (1)
  - PNEUMONIA [None]
